FAERS Safety Report 8839883 (Version 1)
Quarter: 2012Q4

REPORT INFORMATION
  Report Type: Spontaneous
  Country: US (occurrence: None)
  Receive Date: 20121011
  Receipt Date: 20121011
  Transmission Date: 20130627
  Serious: No
  Sender: FDA-Public Use
  Company Number: FRA-CLT-2012075

PATIENT
  Age: 3 Year
  Sex: Male

DRUGS (5)
  1. CYSTADANE [Suspect]
     Indication: COBALAMIN DEFICIENCY
     Route: 048
     Dates: start: 200712, end: 20080223
  2. LEVOCARNIL [Concomitant]
  3. L-CARNITINE [Concomitant]
  4. SPECIAFOLDINE [Concomitant]
  5. VITAMIN B12 [Concomitant]

REACTIONS (3)
  - Ataxia [None]
  - Viral infection [None]
  - Dysgeusia [None]
